FAERS Safety Report 4636855-5 (Version None)
Quarter: 2005Q2

REPORT INFORMATION
  Report Type: 
  Country: None (occurrence: None)
  Receive Date: 20050415
  Receipt Date: 20050311
  Transmission Date: 20051028
  Serious: Yes (Other)
  Sender: FDA-Public Use
  Company Number: GB-MERCK-0503GBR00105

PATIENT
  Age: 57 Year
  Sex: Male
  Weight: 70 kg

DRUGS (6)
  1. ZETIA [Suspect]
     Indication: BLOOD CHOLESTEROL INCREASED
     Route: 048
     Dates: start: 20050124, end: 20050101
  2. ZETIA [Suspect]
     Route: 048
     Dates: start: 20050101, end: 20050215
  3. ASPIRIN [Concomitant]
     Indication: MYOCARDIAL INFARCTION
     Route: 048
     Dates: start: 20010101
  4. RAMIPRIL [Concomitant]
     Indication: BLOOD PRESSURE INCREASED
     Route: 048
     Dates: start: 20010501
  5. RAMIPRIL [Concomitant]
     Indication: MYOCARDIAL INFARCTION
     Route: 048
     Dates: start: 20010501
  6. BEZAFIBRATE [Concomitant]
     Route: 048
     Dates: end: 20050124

REACTIONS (2)
  - ABDOMINAL PAIN [None]
  - SOMNOLENCE [None]
